FAERS Safety Report 8200585 (Version 3)
Quarter: 2016Q2

REPORT INFORMATION
  Report Type: Spontaneous
  Country: US (occurrence: US)
  Receive Date: 20111026
  Receipt Date: 20160610
  Transmission Date: 20160815
  Serious: Yes (Congenital Anomaly, Other)
  Sender: FDA-Public Use
  Company Number: US-GLAXOSMITHKLINE-A0950437A

PATIENT
  Age: 0 Day
  Sex: Male

DRUGS (1)
  1. PAXIL [Suspect]
     Active Substance: PAROXETINE HYDROCHLORIDE
     Indication: DEPRESSION
     Dosage: 20 MG, U
     Route: 064
     Dates: start: 199412

REACTIONS (10)
  - Congenital hydrocephalus [Unknown]
  - Intellectual disability [Unknown]
  - Brain malformation [Unknown]
  - Seizure [Unknown]
  - Developmental delay [Unknown]
  - Dandy-Walker syndrome [Unknown]
  - Periventricular nodular heterotopia [Unknown]
  - Foetal exposure during pregnancy [Unknown]
  - Cerebellar hypoplasia [Unknown]
  - Autism [Unknown]

NARRATIVE: CASE EVENT DATE: 19950131
